FAERS Safety Report 5019726-4 (Version None)
Quarter: 2006Q2

REPORT INFORMATION
  Report Type: 
  Country: None (occurrence: None)
  Receive Date: 20060601
  Receipt Date: 20060522
  Transmission Date: 20061013
  Serious: Yes (Hospitalization)
  Sender: FDA-Public Use
  Company Number: 2006067303

PATIENT
  Age: 70 Year
  Sex: Male

DRUGS (8)
  1. TAHOR (ATORVASTATIN) [Suspect]
     Indication: ILL-DEFINED DISORDER
     Dosage: ORAL
     Route: 048
     Dates: start: 20040216
  2. PERINDOPRIL (PERINDOPRIL) [Suspect]
     Indication: ILL-DEFINED DISORDER
     Dosage: ORAL
     Route: 048
     Dates: start: 20040216
  3. ENOXAPARIN SODIUM [Suspect]
     Indication: ILL-DEFINED DISORDER
     Dosage: SUBCUTANEOUS
     Route: 058
     Dates: start: 20040212, end: 20040217
  4. IODIXANOL (IODIXANOL) [Suspect]
     Indication: ARTERIOGRAM CORONARY
     Dosage: INTRAVENOUS
     Route: 042
     Dates: start: 20040224, end: 20040224
  5. MOLSIDOMINE (MOLSIDOMINE) [Suspect]
     Indication: ARTERIOGRAM CORONARY
     Dosage: INTRA-ARTERIAL
     Route: 013
     Dates: start: 20040224, end: 20040224
  6. CLOPIDOGREL [Suspect]
     Indication: ILL-DEFINED DISORDER
     Dosage: ORAL
     Route: 048
     Dates: start: 20040212
  7. METOPROLOL TARTRATE [Concomitant]
  8. ACETYLSALICYLATE LYSINE (ACETYLSALICYLATE LYSINE) [Concomitant]

REACTIONS (3)
  - PSORIASIS [None]
  - RASH ERYTHEMATOUS [None]
  - RASH MACULAR [None]
